FAERS Safety Report 23039345 (Version 8)
Quarter: 2024Q3

REPORT INFORMATION
  Report Type: Report from Study
  Country: CA (occurrence: CA)
  Receive Date: 20231006
  Receipt Date: 20240906
  Transmission Date: 20241017
  Serious: Yes (Other)
  Sender: TAKEDA
  Company Number: CA-TAKEDA-2023TUS086419

PATIENT
  Sex: Female

DRUGS (15)
  1. VEDOLIZUMAB [Suspect]
     Active Substance: VEDOLIZUMAB
     Indication: Colitis ulcerative
     Dosage: 300 MILLIGRAM
     Route: 042
     Dates: start: 20230818
  2. VEDOLIZUMAB [Suspect]
     Active Substance: VEDOLIZUMAB
     Dosage: 300 MILLIGRAM
     Route: 042
  3. VEDOLIZUMAB [Suspect]
     Active Substance: VEDOLIZUMAB
     Dosage: 300 MILLIGRAM
     Route: 042
  4. VEDOLIZUMAB [Suspect]
     Active Substance: VEDOLIZUMAB
     Dosage: 300 MILLIGRAM
     Route: 042
  5. VEDOLIZUMAB [Suspect]
     Active Substance: VEDOLIZUMAB
     Dosage: 300 MILLIGRAM
     Route: 042
  6. VEDOLIZUMAB [Suspect]
     Active Substance: VEDOLIZUMAB
     Dosage: 300 MILLIGRAM
     Route: 042
  7. VEDOLIZUMAB [Suspect]
     Active Substance: VEDOLIZUMAB
     Dosage: 300 MILLIGRAM
     Route: 042
     Dates: end: 20240830
  8. OXYCODONE [Concomitant]
     Active Substance: OXYCODONE
     Indication: Pain
     Dosage: 5 MILLIGRAM, QD
     Route: 048
  9. INFLECTRA [Concomitant]
     Active Substance: INFLIXIMAB-DYYB
     Dosage: UNK
  10. TRAZODONE [Concomitant]
     Active Substance: TRAZODONE HYDROCHLORIDE
     Dosage: 50 MILLIGRAM, QD
     Route: 048
  11. CYCLOBENZAPRINE [Concomitant]
     Active Substance: CYCLOBENZAPRINE
     Dosage: 100 MILLIGRAM
  12. VITAMIN D [Concomitant]
     Active Substance: VITAMIN D NOS
     Dosage: 10 MILLILITER, 2/MONTH
  13. IRON [Concomitant]
     Active Substance: IRON
     Indication: Supplementation therapy
     Dosage: 300 MILLIGRAM
     Route: 048
  14. CALCIUM [Concomitant]
     Active Substance: CALCIUM
     Dosage: 500 MILLIGRAM
  15. FLUCONAZOLE [Concomitant]
     Active Substance: FLUCONAZOLE
     Dosage: 500 MILLIGRAM, 1/WEEK

REACTIONS (13)
  - Colitis ulcerative [Unknown]
  - Nephrolithiasis [Recovering/Resolving]
  - Colitis microscopic [Not Recovered/Not Resolved]
  - Dizziness [Unknown]
  - Drug ineffective [Not Recovered/Not Resolved]
  - Systemic lupus erythematosus rash [Unknown]
  - Epistaxis [Recovered/Resolved]
  - Urinary tract infection [Recovering/Resolving]
  - Nasal congestion [Unknown]
  - Headache [Unknown]
  - Rash [Recovered/Resolved]
  - Fatigue [Unknown]
  - Cough [Unknown]
